FAERS Safety Report 10548086 (Version 2)
Quarter: 2015Q1

REPORT INFORMATION
  Report Type: Spontaneous
  Country: US (occurrence: US)
  Receive Date: 20141028
  Receipt Date: 20150127
  Transmission Date: 20150720
  Serious: No
  Sender: FDA-Public Use
  Company Number: US-LEO PHARMA-230278

PATIENT
  Sex: Male

DRUGS (2)
  1. PICATO [Suspect]
     Active Substance: INGENOL MEBUTATE
     Indication: ACTINIC KERATOSIS
     Dates: start: 20141003, end: 20141005
  2. PICATO [Suspect]
     Active Substance: INGENOL MEBUTATE
     Indication: ACTINIC KERATOSIS

REACTIONS (4)
  - Inappropriate schedule of drug administration [Unknown]
  - Eyelid oedema [Recovered/Resolved]
  - Eye swelling [Recovered/Resolved]
  - Drug administered at inappropriate site [Unknown]
